FAERS Safety Report 13527413 (Version 3)
Quarter: 2017Q2

REPORT INFORMATION
  Report Type: Spontaneous
  Country: BR (occurrence: BR)
  Receive Date: 20170509
  Receipt Date: 20170621
  Transmission Date: 20170830
  Serious: No
  Sender: FDA-Public Use
  Company Number: BR-PFIZER INC-2017196632

PATIENT
  Age: 87 Year
  Sex: Female

DRUGS (1)
  1. FRONTAL [Suspect]
     Active Substance: ALPRAZOLAM
     Indication: INSOMNIA
     Dosage: HALF TABLET OF 0.5MG (0.25MG) SOMETIMES
     Route: 048

REACTIONS (2)
  - Intentional product use issue [Not Recovered/Not Resolved]
  - Tachycardia [Not Recovered/Not Resolved]

NARRATIVE: CASE EVENT DATE: 2012
